FAERS Safety Report 8162012-4 (Version None)
Quarter: 2012Q1

REPORT INFORMATION
  Report Type: 
  Country: None (occurrence: None)
  Receive Date: 20120224
  Receipt Date: 20111207
  Transmission Date: 20120608
  Serious: No
  Sender: FDA-Public Use
  Company Number: US-BRISTOL-MYERS SQUIBB COMPANY-16260283

PATIENT
  Sex: Male

DRUGS (4)
  1. GLIPIZIDE [Suspect]
     Dates: end: 20110101
  2. ACTOS [Suspect]
  3. METFORMIN HCL [Suspect]
     Dates: end: 20110101
  4. LANTUS [Suspect]
     Indication: TYPE 2 DIABETES MELLITUS
     Dosage: 1DF:12-18 UNITS.LANTUS:100IU/ML TILL 2011.2011-UNK:BID,28UNITS: 2011-ONG,BID.DURATION 7.5YR.
     Route: 058
     Dates: start: 20030101

REACTIONS (1)
  - RENAL DISORDER [None]
